FAERS Safety Report 5059856-4 (Version None)
Quarter: 2006Q3

REPORT INFORMATION
  Report Type: 
  Country: None (occurrence: None)
  Receive Date: 20060724
  Receipt Date: 20060713
  Transmission Date: 20061208
  Serious: Yes (Death, Hospitalization)
  Sender: FDA-Public Use
  Company Number: SE-JNJFOC-20060703141

PATIENT
  Age: 24 Year
  Sex: Female

DRUGS (4)
  1. TRINOVUM [Suspect]
     Indication: CONTRACEPTION
     Route: 048
  2. XANOR [Concomitant]
     Route: 065
  3. IMOVANE [Concomitant]
     Route: 065
  4. CIPRAMIL [Concomitant]
     Route: 065

REACTIONS (1)
  - PULMONARY EMBOLISM [None]
